FAERS Safety Report 9009726 (Version 1)
Quarter: 2013Q1

REPORT INFORMATION
  Report Type: Spontaneous
  Country: US (occurrence: US)
  Receive Date: 20130110
  Receipt Date: 20130110
  Transmission Date: 20140127
  Serious: Yes (Hospitalization)
  Sender: FDA-Public Use
  Company Number: US-BAYER-2013-001650

PATIENT
  Age: 47 Year
  Sex: Female
  Weight: 69.84 kg

DRUGS (6)
  1. YASMIN [Suspect]
     Dosage: 1 P.O. ( BY MOUTH) DAILY
     Route: 048
  2. YAZ [Suspect]
  3. OCELLA [Suspect]
  4. MULTIVITAMIN [Concomitant]
  5. CALCIUM [Concomitant]
  6. CIPROFLOXACIN [Concomitant]
     Dosage: 250 MG, UNK

REACTIONS (2)
  - Deep vein thrombosis [Recovered/Resolved]
  - Thrombophlebitis superficial [None]
